FAERS Safety Report 7864382 (Version 6)
Quarter: 2014Q2

REPORT INFORMATION
  Report Type: Report from Study
  Country: US (occurrence: US)
  Receive Date: 20110321
  Receipt Date: 20140509
  Transmission Date: 20141212
  Serious: Yes (Other)
  Sender: FDA-Public Use
  Company Number: PHHY2011US19270

PATIENT
  Age: 54 Year
  Sex: Female

DRUGS (30)
  1. GILENYA [Suspect]
     Indication: MULTIPLE SCLEROSIS
     Dosage: 0.5 MG, QD
     Route: 048
     Dates: start: 20110303, end: 20110413
  2. SOLU-MEDROL [Suspect]
     Dosage: 1 G, UNK
  3. NAPROXEN [Concomitant]
     Dosage: 500 MG, TID
  4. FUROSEMIDE [Concomitant]
     Dosage: 40 MG, QD
     Route: 048
  5. PROMETHAZINE [Concomitant]
     Dosage: 25 MG, PRN
  6. FLUCONAZOLE [Concomitant]
     Dosage: 150 MG, Q2MO
  7. HYDROXYZINE [Concomitant]
     Dosage: 25 MG, TID
  8. GABAPENTIN [Concomitant]
     Dosage: 300 MG, Q4H
  9. DETROL [Concomitant]
     Dosage: 4 MG, QD
  10. CYMBALTA [Concomitant]
     Dosage: 60 MG, QD
  11. OXYTROL [Concomitant]
     Dosage: 3.9 MG, UNK
  12. TIZANIDINE [Concomitant]
     Dosage: 4 MG, QMO
  13. VENTOLIN [Concomitant]
  14. LAMISIL [Concomitant]
     Dosage: 250 MG, QD
  15. BUTORPHANOL [Concomitant]
     Dosage: 10 ML, TWO TIME A MONTH
  16. HYDROCODONE [Concomitant]
  17. VITAMIN D [Concomitant]
  18. EPINEPHRINE [Concomitant]
  19. XIBROM [Concomitant]
     Dosage: 2 DRP, IN EACH EYES
  20. MULTIVITAMIN [Concomitant]
  21. VITAMIN B12 [Concomitant]
  22. OMEGA 3 FISH OIL [Concomitant]
     Dosage: 1000 MG, TID
  23. CALTRATE 600 + VITAMIN D [Concomitant]
     Dosage: 1 DF, QD
  24. TRIAMCINOLONE ACETONIDE W/NYSTATIN [Concomitant]
  25. BETAMETHASONE [Concomitant]
  26. LIDOCAINE [Concomitant]
  27. PRILOCAINE [Concomitant]
  28. ALBUTEROL [Concomitant]
     Dosage: 2.5 MG, UNK
  29. CLONAZEPAM [Concomitant]
     Dosage: 1 MG, QHS
  30. PROTONIX [Concomitant]
     Dosage: 40 MG, QD

REACTIONS (28)
  - Cardiac disorder [Unknown]
  - Sinusitis [Recovered/Resolved]
  - Pyrexia [Recovered/Resolved]
  - Epistaxis [Recovered/Resolved]
  - Hypertension [Recovered/Resolved]
  - Heart rate decreased [Recovered/Resolved]
  - Angioedema [Recovered/Resolved]
  - Periorbital oedema [Recovered/Resolved]
  - Oedema genital [Recovered/Resolved]
  - Oedema peripheral [Recovered/Resolved]
  - Lip oedema [Recovered/Resolved]
  - Swelling [Recovered/Resolved]
  - Polyuria [Recovered/Resolved]
  - Cyanosis [Recovered/Resolved]
  - Eyelid ptosis [Recovered/Resolved]
  - Palpitations [Recovered/Resolved]
  - Skin lesion [Unknown]
  - Neck pain [Recovered/Resolved]
  - Gait disturbance [Recovered/Resolved]
  - Back pain [Recovered/Resolved]
  - Migraine [Recovered/Resolved]
  - Dyspnoea [Recovered/Resolved]
  - Dysphagia [Recovered/Resolved]
  - Odynophagia [Recovered/Resolved]
  - Nausea [Recovered/Resolved]
  - Dysarthria [Recovered/Resolved]
  - Photosensitivity reaction [Recovered/Resolved]
  - Pain [Recovered/Resolved]
